FAERS Safety Report 4703635-1 (Version None)
Quarter: 2005Q2

REPORT INFORMATION
  Report Type: 
  Country: None (occurrence: None)
  Receive Date: 20050628
  Receipt Date: 20050615
  Transmission Date: 20051028
  Serious: Yes (Hospitalization, Other)
  Sender: FDA-Public Use
  Company Number: 2005089189

PATIENT
  Age: 51 Year
  Sex: Male

DRUGS (5)
  1. SERTRALINE HCL [Suspect]
     Indication: ILL-DEFINED DISORDER
  2. LISINOPRIL [Concomitant]
  3. VALPROIC ACID [Concomitant]
  4. MIRTAZAPINE [Concomitant]
  5. TRAMADOL HCL [Concomitant]

REACTIONS (22)
  - ABDOMINAL PAIN UPPER [None]
  - BLOOD CREATINE PHOSPHOKINASE INCREASED [None]
  - BLOOD CREATINE PHOSPHOKINASE MB ABNORMAL [None]
  - BLOOD POTASSIUM INCREASED [None]
  - BLOOD PRESSURE SYSTOLIC INCREASED [None]
  - CHRONIC OBSTRUCTIVE AIRWAYS DISEASE EXACERBATED [None]
  - DRUG TOXICITY [None]
  - FIBRIN D DIMER INCREASED [None]
  - FLUSHING [None]
  - HAEMODYNAMIC INSTABILITY [None]
  - HYPERHIDROSIS [None]
  - HYPOTENSION [None]
  - INFECTION [None]
  - MYOCLONUS [None]
  - PALPITATIONS [None]
  - RENAL FAILURE ACUTE [None]
  - RESPIRATORY DISTRESS [None]
  - TACHYCARDIA [None]
  - TACHYPNOEA [None]
  - TROPONIN T INCREASED [None]
  - WEIGHT INCREASED [None]
  - WHEEZING [None]
